FAERS Safety Report 18121657 (Version 1)
Quarter: 2020Q3

REPORT INFORMATION
  Report Type: Report from Study
  Country: CO (occurrence: CO)
  Receive Date: 20200806
  Receipt Date: 20200806
  Transmission Date: 20201103
  Serious: Yes (Life-Threatening, Hospitalization)
  Sender: FDA-Public Use
  Company Number: PHHY2019CO049451

PATIENT
  Sex: Female
  Weight: 50 kg

DRUGS (2)
  1. REVOLADE [Suspect]
     Active Substance: ELTROMBOPAG
     Indication: IMMUNE THROMBOCYTOPENIA
     Dosage: 50 MG, QD
     Route: 048
     Dates: start: 20181127
  2. PREDNISOLONE. [Suspect]
     Active Substance: PREDNISOLONE
     Indication: PRODUCT USED FOR UNKNOWN INDICATION
     Dosage: UNK
     Route: 065

REACTIONS (15)
  - Abdominal pain [Unknown]
  - Gait inability [Unknown]
  - Rash [Unknown]
  - Platelet count decreased [Unknown]
  - Dyspepsia [Recovered/Resolved]
  - Sleep disorder [Unknown]
  - Swelling [Unknown]
  - Dyspepsia [Recovering/Resolving]
  - Malaise [Unknown]
  - Feeling of despair [Unknown]
  - Decreased appetite [Unknown]
  - Bone pain [Unknown]
  - Herpes zoster [Unknown]
  - Inflammation [Unknown]
  - Dysstasia [Unknown]
